FAERS Safety Report 6432023-5 (Version None)
Quarter: 2009Q4

REPORT INFORMATION
  Report Type: 
  Country: None (occurrence: None)
  Receive Date: 20091109
  Receipt Date: 20091102
  Transmission Date: 20100525
  Serious: Yes (Hospitalization, Other)
  Sender: FDA-Public Use
  Company Number: US-B.I. PHARMACEUTICALS,INC./RIDGEFIELD-2009-BP-08847BP

PATIENT
  Sex: Male

DRUGS (7)
  1. COMBIVENT [Suspect]
     Indication: CHRONIC OBSTRUCTIVE PULMONARY DISEASE
     Dosage: 8 PUF
     Route: 055
     Dates: start: 20090401
  2. COMBIVENT [Suspect]
     Indication: ASTHMA
  3. MUCINEX DM [Concomitant]
  4. LIPITOR [Concomitant]
     Dosage: 20 MG
  5. AMLODIPINE BESYLATE [Concomitant]
     Dosage: 5 MG
  6. ADVAIR DISKUS 100/50 [Concomitant]
  7. ASPIRIN [Concomitant]
     Dosage: 81 MG

REACTIONS (6)
  - BRONCHIECTASIS [None]
  - CHEST PAIN [None]
  - CHEST X-RAY ABNORMAL [None]
  - HAEMOPTYSIS [None]
  - HYPERGLYCAEMIA [None]
  - INFECTION [None]
